FAERS Safety Report 17729600 (Version 1)
Quarter: 2020Q2

REPORT INFORMATION
  Report Type: Spontaneous
  Country: CN (occurrence: CN)
  Receive Date: 20200430
  Receipt Date: 20200430
  Transmission Date: 20200714
  Serious: Yes (Other)
  Sender: FDA-Public Use
  Company Number: CN-PFIZER INC-2020172648

PATIENT
  Age: 91 Year
  Sex: Female
  Weight: 51 kg

DRUGS (1)
  1. ZOLOFT [Suspect]
     Active Substance: SERTRALINE HYDROCHLORIDE
     Indication: THERAPEUTIC PROCEDURE
     Dosage: 25 MG, 1X/DAY
     Route: 048
     Dates: start: 20200420, end: 20200427

REACTIONS (2)
  - Renal failure [Unknown]
  - Halo vision [Recovering/Resolving]

NARRATIVE: CASE EVENT DATE: 20200427
